FAERS Safety Report 18748291 (Version 1)
Quarter: 2021Q1

REPORT INFORMATION
  Report Type: Spontaneous
  Country: US (occurrence: US)
  Receive Date: 20210115
  Receipt Date: 20210115
  Transmission Date: 20210419
  Serious: No
  Sender: FDA-Public Use
  Company Number: US-ASTRAZENECA-2020SF72018

PATIENT
  Sex: Female

DRUGS (2)
  1. CALQUENCE [Suspect]
     Active Substance: ACALABRUTINIB
     Indication: ILL-DEFINED DISORDER
     Route: 048
  2. GAZYVA [Concomitant]
     Active Substance: OBINUTUZUMAB

REACTIONS (4)
  - Confusional state [Unknown]
  - Contusion [Unknown]
  - Incorrect dose administered [Unknown]
  - Anaemia [Unknown]
